FAERS Safety Report 9371058 (Version 2)
Quarter: 2013Q4

REPORT INFORMATION
  Report Type: Report from Study
  Country: CA (occurrence: CA)
  Receive Date: 20130627
  Receipt Date: 20131112
  Transmission Date: 20140711
  Serious: Yes (Other)
  Sender: FDA-Public Use
  Company Number: CA-ROCHE-1230044

PATIENT
  Age: 74 Year
  Sex: Female
  Weight: 56.7 kg

DRUGS (9)
  1. RITUXAN [Suspect]
     Indication: RHEUMATOID ARTHRITIS
     Route: 042
     Dates: start: 20100412
  2. FOLIC ACID [Concomitant]
  3. DIPHENHYDRAMINE HCL [Concomitant]
     Indication: PREMEDICATION
     Route: 048
     Dates: start: 20100412
  4. ACETAMINOPHEN [Concomitant]
     Indication: PREMEDICATION
     Route: 048
     Dates: start: 20100412
  5. METHYLPREDNISOLONE [Concomitant]
     Indication: PREMEDICATION
     Route: 042
     Dates: start: 20100412
  6. METHOTREXATE [Concomitant]
     Route: 065
  7. MICARDIS [Concomitant]
  8. VITAMIN C [Concomitant]
  9. OMEGA 3 [Concomitant]

REACTIONS (1)
  - Hypotension [Not Recovered/Not Resolved]
